FAERS Safety Report 5127220-5 (Version None)
Quarter: 2006Q4

REPORT INFORMATION
  Report Type: 
  Country: None (occurrence: None)
  Receive Date: 20061010
  Receipt Date: 20060929
  Transmission Date: 20070319
  Serious: Yes (Other)
  Sender: FDA-Public Use
  Company Number: SPV1-2006-00969

PATIENT
  Sex: Male

DRUGS (1)
  1. DAYTRANA [Suspect]
     Dates: start: 20060801

REACTIONS (1)
  - CONVULSION [None]
